FAERS Safety Report 24894245 (Version 5)
Quarter: 2025Q2

REPORT INFORMATION
  Report Type: Report from Study
  Country: DE (occurrence: DE)
  Receive Date: 20250128
  Receipt Date: 20250625
  Transmission Date: 20250716
  Serious: Yes (Hospitalization, Other)
  Sender: EXELIXIS
  Company Number: DE-IPSEN Group, Research and Development-2024-13988

PATIENT

DRUGS (20)
  1. CABOZANTINIB [Suspect]
     Active Substance: CABOZANTINIB
     Indication: Renal cell carcinoma
     Dosage: 40 MG, QD (AT AFTERNOON)
     Route: 065
     Dates: start: 20240527, end: 20240705
  2. CABOZANTINIB [Suspect]
     Active Substance: CABOZANTINIB
     Dosage: 40 MG, QD (AT AFTERNOON)
     Route: 065
     Dates: start: 20240708, end: 20240709
  3. CABOZANTINIB [Suspect]
     Active Substance: CABOZANTINIB
     Dosage: 40 MG, QD (AT AFTERNOON)
     Route: 065
     Dates: start: 20240720, end: 20240725
  4. CABOZANTINIB [Suspect]
     Active Substance: CABOZANTINIB
     Dosage: 40 MG, QD (AT AFTERNOON)
     Route: 065
     Dates: start: 20240726, end: 20240930
  5. NIVOLUMAB [Suspect]
     Active Substance: NIVOLUMAB
     Indication: Renal cell carcinoma
     Route: 042
     Dates: start: 20240527
  6. NIVOLUMAB [Suspect]
     Active Substance: NIVOLUMAB
     Route: 042
     Dates: start: 20240610
  7. NIVOLUMAB [Suspect]
     Active Substance: NIVOLUMAB
     Route: 042
     Dates: start: 20241219
  8. OLMESARTAN [Concomitant]
     Active Substance: OLMESARTAN
     Indication: Hypertension
     Dosage: 10 MG, QOD
     Route: 048
     Dates: start: 20140615
  9. AMLODIPINE BESYLATE [Concomitant]
     Active Substance: AMLODIPINE BESYLATE
     Indication: Hypertension
     Dosage: 5 MG, QOD
     Route: 048
     Dates: start: 20140615
  10. BISOPROLOL [Concomitant]
     Active Substance: BISOPROLOL
     Indication: Myocardial infarction
     Dosage: 3.75 MG, QD
     Route: 048
     Dates: start: 20140615
  11. ASPIRIN [Concomitant]
     Active Substance: ASPIRIN
     Indication: Myocardial infarction
     Dosage: 100 MG, QD
     Route: 048
     Dates: start: 20140615
  12. Dreisafol [Concomitant]
     Indication: Prophylaxis
     Dosage: 5 MG, QD
     Route: 048
     Dates: start: 20240315
  13. DAPAGLIFLOZIN [Concomitant]
     Active Substance: DAPAGLIFLOZIN
     Indication: Nephrosclerosis
     Dosage: 10 MG, QD
     Route: 048
     Dates: start: 20230615
  14. VITAMIN B12 [Concomitant]
     Active Substance: CYANOCOBALAMIN
     Indication: Anaemia
     Dosage: 1000 UG, QD
     Route: 048
     Dates: start: 20240315
  15. CHOLECALCIFEROL [Concomitant]
     Active Substance: CHOLECALCIFEROL
     Indication: Prophylaxis
     Route: 048
     Dates: start: 20240508
  16. BECLOMETHASONE DIPROPIONATE\FORMOTEROL FUMARATE\GLYCOPYRROLATE [Concomitant]
     Active Substance: BECLOMETHASONE DIPROPIONATE\FORMOTEROL FUMARATE\GLYCOPYRROLATE
     Indication: Chronic obstructive pulmonary disease
     Route: 050
     Dates: start: 20090615
  17. SALBUHEXAL [Concomitant]
     Active Substance: ALBUTEROL
     Indication: Prophylaxis
     Route: 050
     Dates: start: 20090615
  18. CERTOPARIN SODIUM [Concomitant]
     Active Substance: CERTOPARIN SODIUM
     Indication: Prophylaxis
     Dosage: 3000 [IU], QD
     Route: 058
     Dates: start: 20240527
  19. ONDANSETRON [Concomitant]
     Active Substance: ONDANSETRON
     Indication: Prophylaxis
     Route: 048
     Dates: start: 20240527
  20. ENOXAPARIN SODIUM [Concomitant]
     Active Substance: ENOXAPARIN SODIUM
     Indication: Prophylaxis
     Dosage: UNK UNK, QD
     Route: 058
     Dates: start: 20250102

REACTIONS (4)
  - Immune-mediated enterocolitis [Recovered/Resolved]
  - Malignant neoplasm progression [Not Recovered/Not Resolved]
  - Dyspnoea [Not Recovered/Not Resolved]
  - Hepatic enzyme increased [Not Recovered/Not Resolved]

NARRATIVE: CASE EVENT DATE: 20240610
